FAERS Safety Report 9157551 (Version 1)
Quarter: 2013Q1

REPORT INFORMATION
  Report Type: Spontaneous
  Country: US (occurrence: None)
  Receive Date: 20130219
  Receipt Date: 20130219
  Transmission Date: 20140127
  Serious: Yes (Other)
  Sender: FDA-Public Use
  Company Number: T[A2013A01447

PATIENT
  Sex: 0

DRUGS (1)
  1. EDARBYCLOR [Suspect]
     Indication: HYPERTENSION

REACTIONS (2)
  - Renal failure [None]
  - Hypokalaemia [None]
